FAERS Safety Report 17970043 (Version 1)
Quarter: 2020Q3

REPORT INFORMATION
  Report Type: Spontaneous
  Country: US (occurrence: US)
  Receive Date: 20200701
  Receipt Date: 20200701
  Transmission Date: 20201103
  Serious: No
  Sender: FDA-Public Use
  Company Number: US-009507513-2006USA010007

PATIENT

DRUGS (1)
  1. ASMANEX [Suspect]
     Active Substance: MOMETASONE FUROATE
     Dosage: 1 PUFF, TWO TIMES A DAY
     Dates: start: 20200623

REACTIONS (6)
  - Circumstance or information capable of leading to medication error [Unknown]
  - No adverse event [Unknown]
  - Product dose omission issue [Unknown]
  - Product label issue [Unknown]
  - Product packaging issue [Unknown]
  - Product container issue [Unknown]

NARRATIVE: CASE EVENT DATE: 20200623
